FAERS Safety Report 24227191 (Version 2)
Quarter: 2024Q3

REPORT INFORMATION
  Report Type: Spontaneous
  Country: FR (occurrence: FR)
  Receive Date: 20240820
  Receipt Date: 20240830
  Transmission Date: 20241016
  Serious: Yes (Hospitalization, Other)
  Sender: MERCK
  Company Number: None

PATIENT
  Age: 69 Year
  Sex: Female
  Weight: 87 kg

DRUGS (22)
  1. APREPITANT [Suspect]
     Active Substance: APREPITANT
     Indication: Prophylaxis of nausea and vomiting
     Dosage: 125 MILLIGRAM, QD
     Route: 048
     Dates: start: 20240503, end: 20240503
  2. APREPITANT [Suspect]
     Active Substance: APREPITANT
     Dosage: 80 MILLIGRAM, QD
     Route: 048
     Dates: start: 20240504, end: 20240505
  3. APREPITANT [Suspect]
     Active Substance: APREPITANT
     Dosage: 125 MILLIGRAM, QD
     Route: 048
     Dates: start: 20240524, end: 20240524
  4. APREPITANT [Suspect]
     Active Substance: APREPITANT
     Dosage: 80 MILLIGRAM, QD
     Route: 048
     Dates: start: 20240525, end: 20240526
  5. DEXAMETHASONE [Suspect]
     Active Substance: DEXAMETHASONE
     Indication: Hodgkin^s disease
     Dosage: 40 MILLIGRAM, QD
     Route: 048
     Dates: start: 20240503, end: 20240507
  6. DEXAMETHASONE [Suspect]
     Active Substance: DEXAMETHASONE
     Dosage: 40 MILLIGRAM, QD
     Route: 048
     Dates: start: 20240524, end: 20240528
  7. ADCETRIS [Suspect]
     Active Substance: BRENTUXIMAB VEDOTIN
     Indication: Hodgkin^s disease
     Dosage: 150 MILLIGRAM, ONCE
     Route: 042
     Dates: start: 20240503, end: 20240503
  8. ADCETRIS [Suspect]
     Active Substance: BRENTUXIMAB VEDOTIN
     Dosage: 150 MILLIGRAM, ONCE
     Route: 042
     Dates: start: 20240524, end: 20240524
  9. POLARAMINE [Suspect]
     Active Substance: DEXCHLORPHENIRAMINE MALEATE
     Indication: Premedication
     Dosage: 5 MILLIGRAM, ONCE
     Route: 042
     Dates: start: 20240503, end: 20240503
  10. POLARAMINE [Suspect]
     Active Substance: DEXCHLORPHENIRAMINE MALEATE
     Dosage: 5 MILLIGRAM, ONCE
     Route: 042
     Dates: start: 20240524, end: 20240524
  11. ONDANSETRON [Suspect]
     Active Substance: ONDANSETRON
     Indication: Prophylaxis of nausea and vomiting
     Dosage: 8 MILLIGRAM, QD
     Route: 042
     Dates: start: 20240503, end: 20240505
  12. ONDANSETRON [Suspect]
     Active Substance: ONDANSETRON
     Dosage: 8 MILLIGRAM, QD
     Route: 042
     Dates: start: 20240524, end: 20240527
  13. DACARBAZINE [Suspect]
     Active Substance: DACARBAZINE
     Indication: Hodgkin^s disease
     Dosage: 460 MILLIGRAM, QD
     Route: 042
     Dates: start: 20240504, end: 20240505
  14. DACARBAZINE [Suspect]
     Active Substance: DACARBAZINE
     Dosage: 465 MILLIGRAM, QD
     Route: 042
     Dates: start: 20240525, end: 20240526
  15. DOXORUBICIN [Suspect]
     Active Substance: DOXORUBICIN
     Indication: Hodgkin^s disease
     Dosage: 74 MILLIGRAM, ONCE
     Route: 042
     Dates: start: 20240503, end: 20240503
  16. DOXORUBICIN [Suspect]
     Active Substance: DOXORUBICIN
     Dosage: 74 MILLIGRAM, ONCE
     Route: 042
     Dates: start: 20240524, end: 20240524
  17. MESNA [Suspect]
     Active Substance: MESNA
     Indication: Prophylaxis
     Dosage: 2100 MILLIGRAM, ONCE
     Route: 042
     Dates: start: 20240503, end: 20240503
  18. MESNA [Suspect]
     Active Substance: MESNA
     Dosage: 703.8 MILLIGRAM, ONCE
     Route: 042
     Dates: start: 20240524, end: 20240524
  19. ETOPOSIDE [Suspect]
     Active Substance: ETOPOSIDE
     Indication: Hodgkin^s disease
     Dosage: 270 MILLIGRAM, QD
     Route: 042
     Dates: start: 20240503, end: 20240505
  20. ETOPOSIDE [Suspect]
     Active Substance: ETOPOSIDE
     Dosage: 270 MILLIGRAM, QD
     Route: 042
     Dates: start: 20240524, end: 20240526
  21. CYCLOPHOSPHAMIDE [Suspect]
     Active Substance: CYCLOPHOSPHAMIDE
     Indication: Hodgkin^s disease
     Dosage: 2300 MILLIGRAM, ONCE
     Route: 042
     Dates: start: 20240503, end: 20240503
  22. CYCLOPHOSPHAMIDE [Suspect]
     Active Substance: CYCLOPHOSPHAMIDE
     Dosage: 2300 MILLIGRAM, ONCE
     Route: 042
     Dates: start: 20240524, end: 20240524

REACTIONS (2)
  - Meningitis aseptic [Recovering/Resolving]
  - Acute polyneuropathy [Recovering/Resolving]

NARRATIVE: CASE EVENT DATE: 20240618
